FAERS Safety Report 5001735-2 (Version None)
Quarter: 2006Q2

REPORT INFORMATION
  Report Type: 
  Country: None (occurrence: None)
  Receive Date: 20060512
  Receipt Date: 20060512
  Transmission Date: 20061013
  Serious: Yes (Disabling)
  Sender: FDA-Public Use
  Company Number: None

PATIENT
  Age: 84 Year
  Sex: Female

DRUGS (1)
  1. COUMADIN [Suspect]
     Dosage: 6 MG QD PO
     Route: 048

REACTIONS (6)
  - BLINDNESS [None]
  - CONFUSIONAL STATE [None]
  - DISORIENTATION [None]
  - HAEMORRHAGE INTRACRANIAL [None]
  - HEADACHE [None]
  - INTRAVENTRICULAR HAEMORRHAGE [None]
